FAERS Safety Report 6987476-0 (Version None)
Quarter: 2010Q3

REPORT INFORMATION
  Report Type: 
  Country: None (occurrence: None)
  Receive Date: 20100916
  Receipt Date: 20100910
  Transmission Date: 20110219
  Serious: Yes (Death)
  Sender: FDA-Public Use
  Company Number: US-BRISTOL-MYERS SQUIBB COMPANY-15285422

PATIENT
  Age: 77 Year
  Sex: Male
  Weight: 63 kg

DRUGS (13)
  1. CETUXIMAB [Suspect]
     Indication: NON-SMALL CELL LUNG CANCER
     Dosage: 60 MG (420 MG, 1 IN 1WEEK),11AUG-18AUG; 420 MG (18AUG-18AUG10)
     Route: 042
     Dates: start: 20100811, end: 20100818
  2. CARBOPLATIN [Suspect]
     Indication: NON-SMALL CELL LUNG CANCER
     Dosage: 12.8571 MG (270 MG, 1 IN 3 WEEKS)
     Route: 042
     Dates: start: 20100811, end: 20100811
  3. GEMCITABINE [Suspect]
     Indication: NON-SMALL CELL LUNG CANCER
     Dosage: 242.8571 MG,1,8 OF A 21 DAY CYCLE,THERAPY DATES:11AUG-18AUG,18AUG:18AUG10
     Route: 042
     Dates: start: 20100811, end: 20100818
  4. PLAVIX [Concomitant]
  5. PRAVASTATIN SODIUM [Concomitant]
     Route: 065
  6. AMLODIPINE [Concomitant]
     Route: 065
  7. PREDNISONE [Concomitant]
     Route: 065
  8. ADVAIR DISKUS 100/50 [Concomitant]
     Route: 065
  9. GUAIFENESIN [Concomitant]
     Dosage: AT NIGHT
     Route: 065
  10. SPIRIVA [Concomitant]
     Route: 065
  11. DIFLUCAN [Concomitant]
     Indication: INFECTION
     Dosage: FEW DAYS
     Route: 065
     Dates: start: 20100829
  12. VANCOMYCIN [Concomitant]
     Route: 042
     Dates: start: 20100829, end: 20100829
  13. DORIPENEM [Concomitant]

REACTIONS (1)
  - PULMONARY EMBOLISM [None]
